FAERS Safety Report 9796092 (Version 1)
Quarter: 2014Q1

REPORT INFORMATION
  Report Type: Spontaneous
  Country: US (occurrence: US)
  Receive Date: 20140103
  Receipt Date: 20140103
  Transmission Date: 20141002
  Serious: No
  Sender: FDA-Public Use
  Company Number: US-009507513-1312USA010642

PATIENT
  Sex: Female
  Weight: 58.96 kg

DRUGS (4)
  1. NEXPLANON [Suspect]
     Indication: CONTRACEPTION
     Dosage: 1 ROD
     Route: 059
  2. MAXALT [Concomitant]
  3. ZOLOFT [Concomitant]
  4. PRILOSEC [Concomitant]

REACTIONS (1)
  - Meniscus injury [Not Recovered/Not Resolved]
